FAERS Safety Report 21036972 (Version 1)
Quarter: 2022Q3

REPORT INFORMATION
  Report Type: Report from Study
  Country: US (occurrence: US)
  Receive Date: 20220702
  Receipt Date: 20220702
  Transmission Date: 20221026
  Serious: Yes (Hospitalization)
  Sender: FDA-Public Use
  Company Number: US-TEVA-2022-US-2049978

PATIENT
  Age: 48 Year
  Sex: Female
  Weight: 93 kg

DRUGS (14)
  1. DAUNORUBICIN [Suspect]
     Active Substance: DAUNORUBICIN
     Indication: Acute myeloid leukaemia
     Dosage: INDUCTION, SOLUTION,DAILY BY CONTINUOUS INFUSION
     Route: 041
     Dates: start: 20191018, end: 20191020
  2. DAUNORUBICIN [Suspect]
     Active Substance: DAUNORUBICIN
     Dosage: INDUCTION CYCLE 2,,DAILY BY CONTINUOUS INFUSION
     Route: 042
     Dates: start: 20191104, end: 20191105
  3. CYTARABINE [Suspect]
     Active Substance: CYTARABINE
     Indication: Acute myeloid leukaemia
     Dosage: DAILY BY CONTINUOUS INFUSION, INDUCTION
     Route: 041
     Dates: start: 20191018, end: 20191026
  4. CYTARABINE [Suspect]
     Active Substance: CYTARABINE
     Dosage: DAILY BY INFUSION CONTINUOUS , INDUCTION CYCLE 2,
     Route: 042
     Dates: start: 20191104, end: 20191109
  5. GLASDEGIB [Suspect]
     Active Substance: GLASDEGIB
     Indication: Acute myeloid leukaemia
     Dosage: ONCE DAILY CONTINUOUS
     Route: 048
     Dates: start: 20191018, end: 20191128
  6. ZARXIO [Concomitant]
     Active Substance: FILGRASTIM-SNDZ
     Indication: Pancytopenia
     Dates: start: 20191126, end: 20191202
  7. VANCOMYCIN [Concomitant]
     Active Substance: VANCOMYCIN
     Indication: Febrile neutropenia
     Dates: start: 20191201, end: 20191202
  8. VANCOMYCIN [Concomitant]
     Active Substance: VANCOMYCIN
     Indication: Antibiotic prophylaxis
     Dates: start: 20191203, end: 20191204
  9. MEROPENEM [Concomitant]
     Active Substance: MEROPENEM
     Indication: Cellulitis
     Dates: start: 20191201, end: 20191202
  10. LORAZEPAM [Concomitant]
     Active Substance: LORAZEPAM
     Indication: Anxiety
     Dates: start: 20191205, end: 20191216
  11. FILGRASTIM SNDZ [Concomitant]
     Indication: Neutropenia
     Dates: start: 20191206, end: 20191216
  12. GADOTERATE MEGLUMINE [Concomitant]
     Active Substance: GADOTERATE MEGLUMINE
     Indication: Computerised tomogram
     Dates: start: 20191206, end: 20191206
  13. PIPERACILLIN AND TAZOBACTAM [Concomitant]
     Active Substance: PIPERACILLIN SODIUM\TAZOBACTAM SODIUM
     Indication: Antiviral prophylaxis
     Dates: start: 20191208, end: 20191209
  14. DRONABINOL [Concomitant]
     Active Substance: DRONABINOL
     Indication: Nausea
     Dates: start: 20191208, end: 20191216

REACTIONS (1)
  - Hypotension [Recovered/Resolved]

NARRATIVE: CASE EVENT DATE: 20191209
